FAERS Safety Report 6148852-1 (Version None)
Quarter: 2009Q2

REPORT INFORMATION
  Report Type: 
  Country: None (occurrence: None)
  Receive Date: 20090408
  Receipt Date: 20090403
  Transmission Date: 20091009
  Serious: Yes (Other)
  Sender: FDA-Public Use
  Company Number: RU-MERCK-0903RUS00005

PATIENT
  Age: 71 Year
  Sex: Female

DRUGS (2)
  1. FOSAMAX PLUS D [Suspect]
     Indication: RHEUMATOID ARTHRITIS
     Route: 048
     Dates: end: 20080901
  2. OMEPRAZOLE [Concomitant]
     Route: 048

REACTIONS (1)
  - TRANSAMINASES INCREASED [None]
